FAERS Safety Report 7297345-7 (Version None)
Quarter: 2011Q1

REPORT INFORMATION
  Report Type: 
  Country: None (occurrence: None)
  Receive Date: 20110204
  Receipt Date: 20110120
  Transmission Date: 20110831
  Serious: Yes (Other)
  Sender: FDA-Public Use
  Company Number: 1000018554

PATIENT
  Age: 94 Year
  Sex: Male
  Weight: 78 kg

DRUGS (1)
  1. ESCITALOPRAM OXALATE [Suspect]
     Indication: DEPRESSION
     Dosage: 5 MG (5 MG, 1 IN 1 D), ORAL
     Route: 048
     Dates: start: 20100810, end: 20100929

REACTIONS (3)
  - ASTHENIA [None]
  - COGNITIVE DISORDER [None]
  - HYPONATRAEMIA [None]
